FAERS Safety Report 8515801-8 (Version None)
Quarter: 2012Q3

REPORT INFORMATION
  Report Type: 
  Country: None (occurrence: None)
  Receive Date: 20120705
  Receipt Date: 20120626
  Transmission Date: 20120928
  Serious: Yes (Hospitalization, Other)
  Sender: FDA-Public Use
  Company Number: 2012SP016829

PATIENT
  Age: 63 Year
  Sex: Female
  Weight: 45 kg

DRUGS (11)
  1. TELAVIC (ANTIVIRALS NOS) [Suspect]
     Indication: HEPATITIS C
     Dosage: 1500 MG;QD;PO 1500 MG;QD;PO 1000 MG;QD;PO 1000 MG;QD;PO
     Route: 048
     Dates: start: 20120421
  2. TELAVIC (ANTIVIRALS NOS) [Suspect]
     Indication: HEPATITIS C
     Dosage: 1500 MG;QD;PO 1500 MG;QD;PO 1000 MG;QD;PO 1000 MG;QD;PO
     Route: 048
     Dates: start: 20120209, end: 20120302
  3. TELAVIC (ANTIVIRALS NOS) [Suspect]
     Indication: HEPATITIS C
     Dosage: 1500 MG;QD;PO 1500 MG;QD;PO 1000 MG;QD;PO 1000 MG;QD;PO
     Route: 048
     Dates: start: 20120330, end: 20120419
  4. TELAVIC (ANTIVIRALS NOS) [Suspect]
     Indication: HEPATITIS C
     Dosage: 1500 MG;QD;PO 1500 MG;QD;PO 1000 MG;QD;PO 1000 MG;QD;PO
     Route: 048
     Dates: start: 20120308, end: 20120329
  5. RABEPRAZOLE SODIUM [Concomitant]
  6. PEG-INTRON [Suspect]
     Indication: HEPATITIS C
     Dosage: 1.5 MCG/KG;QW;SC
     Route: 058
     Dates: start: 20120209
  7. ALLOPURINOL [Concomitant]
  8. CELESTAMINE TAB [Concomitant]
  9. REBETOL [Suspect]
     Indication: HEPATITIS C
     Dosage: 600 MG;QD;PO 200 MG;QD;PO 400 MG;QD;PO
     Route: 048
     Dates: start: 20120209, end: 20120307
  10. REBETOL [Suspect]
     Indication: HEPATITIS C
     Dosage: 600 MG;QD;PO 200 MG;QD;PO 400 MG;QD;PO
     Route: 048
     Dates: start: 20120308, end: 20120419
  11. REBETOL [Suspect]
     Indication: HEPATITIS C
     Dosage: 600 MG;QD;PO 200 MG;QD;PO 400 MG;QD;PO
     Route: 048
     Dates: start: 20120421

REACTIONS (11)
  - HEPATIC FUNCTION ABNORMAL [None]
  - NAUSEA [None]
  - HYPERURICAEMIA [None]
  - DECREASED APPETITE [None]
  - ASPARTATE AMINOTRANSFERASE INCREASED [None]
  - ANAEMIA [None]
  - RASH [None]
  - PYREXIA [None]
  - ALANINE AMINOTRANSFERASE INCREASED [None]
  - PRURITUS [None]
  - VOMITING [None]
